FAERS Safety Report 5549538-4 (Version None)
Quarter: 2007Q4

REPORT INFORMATION
  Report Type: 
  Country: None (occurrence: None)
  Receive Date: 20071212
  Receipt Date: 20071130
  Transmission Date: 20080405
  Serious: Yes (Other)
  Sender: FDA-Public Use
  Company Number: PHHY2007BR00708

PATIENT
  Age: 69 Year
  Sex: Female
  Weight: 55 kg

DRUGS (9)
  1. GALVUS [Suspect]
     Indication: DIABETES MELLITUS
     Dosage: 100 MG, QD
     Route: 048
     Dates: start: 20070801
  2. HYGROTON [Suspect]
     Indication: HYPERTENSION
     Dates: end: 20071129
  3. METFORMIN HCL [Concomitant]
     Indication: DIABETES MELLITUS
     Dosage: 4 TABLETS AT NIGHT
     Route: 048
  4. DIAMICRON [Concomitant]
     Indication: DIABETES MELLITUS
     Dosage: 30 MG, QID
     Route: 048
  5. ACTOS [Concomitant]
     Indication: DIABETES MELLITUS
     Dosage: 30 MG, QD
     Route: 048
  6. ACETYLSALICYLIC ACID SRT [Concomitant]
     Dosage: 350 MG, QD
     Route: 048
  7. ALENDRONATE SODIUM [Concomitant]
     Route: 048
  8. CONCOR [Concomitant]
     Indication: HYPERTENSION
     Route: 048
     Dates: end: 20071129
  9. DIOVAN AMLO [Suspect]
     Indication: HYPERTENSION
     Dosage: 160 MG OF VALS/ 5 MG OF AMLO / DAY
     Route: 048
     Dates: start: 20070801

REACTIONS (4)
  - ASTHENIA [None]
  - BLOOD GLUCOSE INCREASED [None]
  - HYPERHIDROSIS [None]
  - HYPOGLYCAEMIA [None]
